FAERS Safety Report 7536935 (Version 2)
Quarter: 2016Q2

REPORT INFORMATION
  Report Type: Report from Study
  Country: US (occurrence: US)
  Receive Date: 20100811
  Receipt Date: 20160607
  Transmission Date: 20160815
  Serious: Yes (Other)
  Sender: FDA-Public Use
  Company Number: US-ROCHE-719360

PATIENT
  Sex: Female

DRUGS (1)
  1. BEVACIZUMAB [Suspect]
     Active Substance: BEVACIZUMAB
     Indication: AGE-RELATED MACULAR DEGENERATION
     Dosage: PERMANENTLY DISCONTINUED SCONTINUED AFTER 8TH INJECTION. 0.05 ML
     Route: 050

REACTIONS (1)
  - Eye inflammation [Recovered/Resolved]
